FAERS Safety Report 16149310 (Version 1)
Quarter: 2019Q1

REPORT INFORMATION
  Report Type: Spontaneous
  Country: US (occurrence: US)
  Receive Date: 20190227
  Receipt Date: 20190227
  Transmission Date: 20190418
  Serious: Yes (Life-Threatening, Hospitalization, Disabling)
  Sender: FDA-Public Use
  Company Number: None

PATIENT
  Age: 67 Year
  Sex: Female
  Weight: 86.18 kg

DRUGS (5)
  1. QUINAPRIL. [Suspect]
     Active Substance: QUINAPRIL
     Indication: HYPERTENSION
     Dosage: ?          QUANTITY:0.5 MG MILLIGRAM(S);?
     Route: 048
     Dates: start: 2003, end: 2017
  2. ACCUPRIL [Suspect]
     Active Substance: QUINAPRIL HYDROCHLORIDE
  3. PROTEIN POWDER [Concomitant]
  4. LISINOPRIL. [Suspect]
     Active Substance: LISINOPRIL
  5. VITAMINS [Concomitant]
     Active Substance: VITAMINS

REACTIONS (9)
  - Anaemia [None]
  - Diabetes mellitus [None]
  - Macroglossia [None]
  - Gastric disorder [None]
  - Sleep apnoea syndrome [None]
  - Bone loss [None]
  - Cough [None]
  - Angioedema [None]
  - Tooth loss [None]

NARRATIVE: CASE EVENT DATE: 2003
